FAERS Safety Report 6373892-7 (Version None)
Quarter: 2009Q3

REPORT INFORMATION
  Report Type: 
  Country: None (occurrence: None)
  Receive Date: 20090924
  Receipt Date: 20090513
  Transmission Date: 20100115
  Serious: No
  Sender: FDA-Public Use
  Company Number: US-ASTRAZENECA-2009UW12460

PATIENT
  Age: 38 Year
  Sex: Female
  Weight: 54.4 kg

DRUGS (3)
  1. SEROQUEL XR [Suspect]
     Indication: ABNORMAL BEHAVIOUR
     Dosage: 200 MG IN AM AND 300 MG AT BEDTIME
     Route: 048
  2. BUSPAR [Concomitant]
  3. DEPAKOTE [Concomitant]

REACTIONS (3)
  - PRURITUS [None]
  - SCREAMING [None]
  - SKIN HAEMORRHAGE [None]
